FAERS Safety Report 5131127-7 (Version None)
Quarter: 2006Q4

REPORT INFORMATION
  Report Type: 
  Country: None (occurrence: None)
  Receive Date: 20061016
  Receipt Date: 20061006
  Transmission Date: 20070319
  Serious: Yes (Other)
  Sender: FDA-Public Use
  Company Number: CA-2006-030581

PATIENT
  Age: 43 Year
  Sex: Female

DRUGS (2)
  1. MIRENA [Suspect]
     Indication: CONTRACEPTION
     Dosage: 20 ?G/DAY, CONT, INTRA-UTERINE
     Route: 015
     Dates: start: 20020801
  2. ZOMIG [Concomitant]

REACTIONS (7)
  - ACTIVITIES OF DAILY LIVING IMPAIRED [None]
  - BREAST TENDERNESS [None]
  - CONDITION AGGRAVATED [None]
  - DEPRESSION [None]
  - MAJOR DEPRESSION [None]
  - METRORRHAGIA [None]
  - SUICIDAL IDEATION [None]
